FAERS Safety Report 20451768 (Version 7)
Quarter: 2022Q2

REPORT INFORMATION
  Report Type: Spontaneous
  Country: US (occurrence: US)
  Receive Date: 20220209
  Receipt Date: 20220607
  Transmission Date: 20220721
  Serious: Yes (Hospitalization, Other)
  Sender: FDA-Public Use
  Company Number: US-ELI_LILLY_AND_COMPANY-US202202001265

PATIENT
  Sex: Female
  Weight: 52.16 kg

DRUGS (6)
  1. ADCIRCA [Suspect]
     Active Substance: TADALAFIL
     Indication: Pulmonary arterial hypertension
     Dosage: 40 MG, DAILY
     Route: 048
     Dates: start: 20210519
  2. REMODULIN [Suspect]
     Active Substance: TREPROSTINIL
     Indication: Pulmonary arterial hypertension
     Dosage: 15 NG/KG/M IN, DAILY
     Route: 042
     Dates: start: 20211015
  3. REMODULIN [Suspect]
     Active Substance: TREPROSTINIL
     Dosage: 19 NG/KG/M IN, DAILY
     Route: 042
  4. REMODULIN [Suspect]
     Active Substance: TREPROSTINIL
     Dosage: 20 NG/KG/M IN
     Route: 042
  5. REMODULIN [Suspect]
     Active Substance: TREPROSTINIL
     Dosage: UNK UNK, OTHER (20 NG/KG/MIN)
     Route: 042
  6. OPSUMIT [Concomitant]
     Active Substance: MACITENTAN
     Indication: Pulmonary arterial hypertension

REACTIONS (14)
  - Atrial fibrillation [Unknown]
  - Hypoxia [Unknown]
  - Dizziness [Unknown]
  - Dyspnoea [Unknown]
  - Road traffic accident [Unknown]
  - Erythema [Unknown]
  - Pruritus [Unknown]
  - Vascular device infection [Unknown]
  - Mydriasis [Unknown]
  - Scab [Unknown]
  - Sensitive skin [Unknown]
  - Tachycardia [Unknown]
  - Back pain [Unknown]
  - Headache [Unknown]
